FAERS Safety Report 18530112 (Version 1)
Quarter: 2020Q4

REPORT INFORMATION
  Report Type: Spontaneous
  Country: US (occurrence: US)
  Receive Date: 20201120
  Receipt Date: 20201120
  Transmission Date: 20210114
  Serious: Yes (Hospitalization, Other)
  Sender: FDA-Public Use
  Company Number: US-ABBVIE-20K-163-3660642-00

PATIENT
  Age: 78 Year
  Sex: Male
  Weight: 70 kg

DRUGS (6)
  1. CALQUENCE [Concomitant]
     Active Substance: ACALABRUTINIB
     Indication: LYMPHOMA
     Dates: start: 202006
  2. IMBRUVICA [Suspect]
     Active Substance: IBRUTINIB
     Indication: LYMPHOMA
     Route: 048
     Dates: end: 202006
  3. CARVEDILOL. [Suspect]
     Active Substance: CARVEDILOL
     Indication: CARDIAC DISORDER
     Route: 065
  4. FUROSEMIDE. [Suspect]
     Active Substance: FUROSEMIDE
     Indication: CARDIAC FAILURE CONGESTIVE
     Route: 048
     Dates: start: 202003, end: 202009
  5. EPLERENONE. [Suspect]
     Active Substance: EPLERENONE
     Indication: CARDIAC DISORDER
     Dosage: INITIALLY 1 TAB A DAY, NOW HALF TAB
     Route: 065
     Dates: start: 202006
  6. ENTRESTO [Suspect]
     Active Substance: SACUBITRIL\VALSARTAN
     Indication: CARDIAC DISORDER
     Dosage: 24/25 TWICE DAILY, UPPED IT 48/51 TWICE A DAY FOLLOWED WITH CUT BACK TO 24/25
     Route: 065
     Dates: start: 202006

REACTIONS (5)
  - Vision blurred [Unknown]
  - Respiratory disorder [Unknown]
  - Pulmonary oedema [Unknown]
  - Photophobia [Not Recovered/Not Resolved]
  - Dizziness [Unknown]

NARRATIVE: CASE EVENT DATE: 202004
